FAERS Safety Report 13326628 (Version 2)
Quarter: 2017Q2

REPORT INFORMATION
  Report Type: Spontaneous
  Country: US (occurrence: US)
  Receive Date: 20170311
  Receipt Date: 20170510
  Transmission Date: 20170830
  Serious: No
  Sender: FDA-Public Use
  Company Number: US-SHIRE-US201703498

PATIENT
  Age: 44 Year
  Sex: Female
  Weight: 58.96 kg

DRUGS (3)
  1. XIIDRA [Suspect]
     Active Substance: LIFITEGRAST
     Dosage: 1 GTT, 1X/DAY:QD;
     Route: 047
  2. XIIDRA [Suspect]
     Active Substance: LIFITEGRAST
     Indication: DRY EYE
     Dosage: UNK, 4X/DAY:QID
     Route: 047
     Dates: start: 20170215
  3. XIIDRA [Suspect]
     Active Substance: LIFITEGRAST
     Dosage: UNK, 2X/DAY:BID
     Route: 047
     Dates: start: 2017

REACTIONS (2)
  - Inappropriate schedule of drug administration [Recovered/Resolved]
  - Hypoaesthesia [Recovered/Resolved]

NARRATIVE: CASE EVENT DATE: 20170215
